FAERS Safety Report 15152976 (Version 3)
Quarter: 2020Q4

REPORT INFORMATION
  Report Type: Spontaneous
  Country: US (occurrence: US)
  Receive Date: 20180717
  Receipt Date: 20201231
  Transmission Date: 20210113
  Serious: No
  Sender: FDA-Public Use
  Company Number: US-PFIZER INC-2018285758

PATIENT
  Age: 76 Year
  Sex: Female

DRUGS (2)
  1. DILTIA [Concomitant]
     Indication: BLOOD PRESSURE ABNORMAL
     Dosage: UNK
  2. XELJANZ XR [Suspect]
     Active Substance: TOFACITINIB CITRATE
     Dosage: 11 MG

REACTIONS (3)
  - Product dispensing error [Unknown]
  - Condition aggravated [Unknown]
  - Insomnia [Unknown]
